FAERS Safety Report 5412096-9 (Version None)
Quarter: 2007Q3

REPORT INFORMATION
  Report Type: 
  Country: None (occurrence: None)
  Receive Date: 20070813
  Receipt Date: 20070802
  Transmission Date: 20080115
  Serious: Yes (Life-Threatening, Hospitalization, Other)
  Sender: FDA-Public Use
  Company Number: GB-AVENTIS-200717134GDDC

PATIENT
  Age: 45 Year
  Sex: Female
  Weight: 90 kg

DRUGS (1)
  1. METRONIDAZOLE [Suspect]
     Dosage: DOSE: UNK
     Route: 048
     Dates: start: 20070718, end: 20070721

REACTIONS (1)
  - PUSTULAR PSORIASIS [None]
